FAERS Safety Report 13112476 (Version 1)
Quarter: 2017Q1

REPORT INFORMATION
  Report Type: Spontaneous
  Country: US (occurrence: US)
  Receive Date: 20170113
  Receipt Date: 20170113
  Transmission Date: 20170428
  Serious: No
  Sender: FDA-Public Use
  Company Number: US-JNJFOC-20161211407

PATIENT
  Sex: Male
  Weight: 77.11 kg

DRUGS (2)
  1. HALDOL [Suspect]
     Active Substance: HALOPERIDOL
     Indication: PRODUCT USED FOR UNKNOWN INDICATION
     Dosage: 5 MG IN THE MORNING AND 15 MG AT NIGHT
     Route: 065
  2. NAVANE [Concomitant]
     Active Substance: THIOTHIXENE
     Dosage: BLUE AND WHITE CAPSULES
     Route: 065

REACTIONS (1)
  - Therapeutic response unexpected [Unknown]
